FAERS Safety Report 7361950-X (Version None)
Quarter: 2011Q1

REPORT INFORMATION
  Report Type: 
  Country: None (occurrence: None)
  Receive Date: 20110315
  Receipt Date: 20110315
  Transmission Date: 20110831
  Serious: Yes (Death, Life-Threatening)
  Sender: FDA-Public Use
  Company Number: None

PATIENT
  Age: 47 Year
  Sex: Male
  Weight: 97.3 kg

DRUGS (2)
  1. LEVULAN [Suspect]
     Indication: BRAIN NEOPLASM
     Dosage: 20 MG/KG IN 50 ML STERILE H2O ONCE PO
     Route: 048
     Dates: start: 20110224, end: 20110224
  2. LEVULAN [Suspect]
     Indication: BRAIN NEOPLASM
     Dosage: 20 MG/KG IN 50 ML STERILE H2O ONCE PO
     Route: 048
     Dates: start: 20110217, end: 20110217

REACTIONS (6)
  - ELECTROCARDIOGRAM ST SEGMENT ABNORMAL [None]
  - CEREBELLAR HAEMORRHAGE [None]
  - HYDROCEPHALUS [None]
  - INTRAVENTRICULAR HAEMORRHAGE [None]
  - PROCEDURAL HYPOTENSION [None]
  - GENERAL PHYSICAL HEALTH DETERIORATION [None]
